FAERS Safety Report 4735771-8 (Version None)
Quarter: 2005Q3

REPORT INFORMATION
  Report Type: 
  Country: None (occurrence: None)
  Receive Date: 20050803
  Receipt Date: 20050803
  Transmission Date: 20060218
  Serious: Yes (Life-Threatening, Hospitalization)
  Sender: FDA-Public Use
  Company Number: None

PATIENT
  Age: 70 Year
  Sex: Male
  Weight: 102.0593 kg

DRUGS (14)
  1. VYTORIN [Suspect]
     Dosage: ONE DAILY
     Dates: start: 20050208, end: 20050711
  2. ASPIRIN [Concomitant]
  3. DIOVAN [Concomitant]
  4. CARDURA [Concomitant]
  5. GLUCOTROL XL [Concomitant]
  6. NEORAL CYCLORPORINE [Concomitant]
  7. RAD 253 [Concomitant]
  8. CALCIUM GLUCONATE [Concomitant]
  9. INSULIN [Concomitant]
  10. R INSULIN [Concomitant]
  11. FLONASE [Concomitant]
  12. CLAINEX [Concomitant]
  13. BUMETANIDE [Concomitant]
  14. CARDIZEM [Concomitant]

REACTIONS (12)
  - ASTHENIA [None]
  - BLOOD CREATINE PHOSPHOKINASE INCREASED [None]
  - DIARRHOEA [None]
  - ENZYME ABNORMALITY [None]
  - LIVER DISORDER [None]
  - MUSCLE ATROPHY [None]
  - MYALGIA [None]
  - OEDEMA PERIPHERAL [None]
  - PAIN [None]
  - RENAL DISORDER [None]
  - VOMITING [None]
  - WEIGHT DECREASED [None]
